FAERS Safety Report 5661111-6 (Version None)
Quarter: 2008Q1

REPORT INFORMATION
  Report Type: 
  Country: None (occurrence: None)
  Receive Date: 20080305
  Receipt Date: 20080225
  Transmission Date: 20080703
  Serious: Yes (Other)
  Sender: FDA-Public Use
  Company Number: CHPA2008US03688

PATIENT
  Age: 36 Month
  Sex: Male

DRUGS (3)
  1. TRIAMINIC SOFTCHEWS [Suspect]
     Indication: NASOPHARYNGITIS
     Dosage: 1 DF, ONCE/SINGLE, ORAL
     Route: 048
  2. ACETAMINOPHEN [Concomitant]
  3. ANTIBIOTICS [Concomitant]

REACTIONS (2)
  - DELIRIUM [None]
  - DYSPHONIA [None]
